FAERS Safety Report 9959968 (Version 1)
Quarter: 2014Q1

REPORT INFORMATION
  Report Type: Spontaneous
  Country: US (occurrence: None)
  Receive Date: 20140228
  Receipt Date: 20140228
  Transmission Date: 20141002
  Serious: Yes (Hospitalization)
  Sender: FDA-Public Use
  Company Number: None

PATIENT
  Age: 59 Year
  Sex: Male
  Weight: 93.2 kg

DRUGS (10)
  1. PRASUGREL [Suspect]
     Indication: PERCUTANEOUS CORONARY INTERVENTION
     Dosage: 6 TABLETS (60 MG) ONCE ORAL
     Route: 048
     Dates: start: 20140219, end: 20140219
  2. ASPIRIN [Concomitant]
  3. PLAVIX [Concomitant]
  4. ASPIRIN [Concomitant]
  5. LIPITOR [Concomitant]
  6. LISINOPRIL [Concomitant]
  7. METOPROLOL XL [Concomitant]
  8. PLAVIX [Concomitant]
  9. NITROGLYCERINE [Concomitant]
  10. FENTANYL [Concomitant]

REACTIONS (6)
  - Vascular pseudoaneurysm [None]
  - Post procedural complication [None]
  - Scrotal oedema [None]
  - Blood pressure decreased [None]
  - Retroperitoneal haemorrhage [None]
  - Iliac artery rupture [None]
